FAERS Safety Report 5017858-8 (Version None)
Quarter: 2006Q2

REPORT INFORMATION
  Report Type: 
  Country: None (occurrence: None)
  Receive Date: 20060605
  Receipt Date: 20060509
  Transmission Date: 20061013
  Serious: Yes (Hospitalization)
  Sender: FDA-Public Use
  Company Number: JP-BRISTOL-MYERS SQUIBB COMPANY-13379987

PATIENT
  Age: 72 Year
  Sex: Female

DRUGS (4)
  1. ENDOXAN TABS [Suspect]
     Indication: BREAST CANCER
     Route: 048
     Dates: start: 20060426, end: 20060428
  2. LOXONIN [Suspect]
     Indication: HEADACHE
     Route: 048
     Dates: start: 20060428, end: 20060429
  3. FARMORUBICIN [Concomitant]
     Dates: start: 20060424, end: 20060424
  4. FLUOROURACIL [Concomitant]
     Dates: start: 20060424, end: 20060424

REACTIONS (2)
  - ASTHMA [None]
  - RESPIRATORY FAILURE [None]
